FAERS Safety Report 11202356 (Version 1)
Quarter: 2015Q2

REPORT INFORMATION
  Report Type: Spontaneous
  Country: US (occurrence: US)
  Receive Date: 20150619
  Receipt Date: 20150619
  Transmission Date: 20150821
  Serious: Yes (Other)
  Sender: FDA-Public Use
  Company Number: US-PFIZER INC-2015201893

PATIENT
  Sex: Female

DRUGS (1)
  1. LYRICA [Suspect]
     Active Substance: PREGABALIN
     Dosage: 150 MG, UNK

REACTIONS (7)
  - Spinal cord injury [Unknown]
  - Fibromyalgia [Unknown]
  - Craniocerebral injury [Unknown]
  - Head injury [Unknown]
  - Balance disorder [Unknown]
  - Memory impairment [Unknown]
  - Concussion [Unknown]
